FAERS Safety Report 24818401 (Version 1)
Quarter: 2025Q1

REPORT INFORMATION
  Report Type: Spontaneous
  Country: PT (occurrence: PT)
  Receive Date: 20250108
  Receipt Date: 20250108
  Transmission Date: 20250409
  Serious: Yes (Other)
  Sender: ACCORD
  Company Number: PT-EMA-DD-20241203-7482831-083446

PATIENT
  Age: 20 Year
  Sex: Female

DRUGS (11)
  1. MYCOPHENOLATE MOFETIL [Suspect]
     Active Substance: MYCOPHENOLATE MOFETIL
     Indication: Cardiac failure
  2. ATORVASTATIN [Suspect]
     Active Substance: ATORVASTATIN
     Indication: Cardiac failure
  3. FERROUS SULFATE [Suspect]
     Active Substance: FERROUS SULFATE
     Indication: Cardiac failure
  4. INSULIN NOS [Suspect]
     Active Substance: INSULIN NOS
     Indication: Cardiac failure
  5. SIROLIMUS [Suspect]
     Active Substance: SIROLIMUS
     Indication: Cardiac failure
  6. ASPIRIN [Suspect]
     Active Substance: ASPIRIN
     Indication: Cardiac failure
  7. CALCIUM CARBONATE [Suspect]
     Active Substance: CALCIUM CARBONATE
     Indication: Cardiac failure
  8. ENALAPRIL [Suspect]
     Active Substance: ENALAPRIL
     Indication: Cardiac failure
  9. CLOPIDOGREL [Suspect]
     Active Substance: CLOPIDOGREL BISULFATE
     Indication: Cardiac failure
  10. OMEPRAZOLE [Suspect]
     Active Substance: OMEPRAZOLE
     Indication: Cardiac failure
  11. PREDNISOLONE [Suspect]
     Active Substance: PREDNISOLONE
     Indication: Cardiac failure

REACTIONS (6)
  - Myocarditis [Unknown]
  - Myocardial infarction [Unknown]
  - Cardiac failure [Unknown]
  - Ventricular dysfunction [Unknown]
  - COVID-19 [Unknown]
  - Off label use [Unknown]
